FAERS Safety Report 10543490 (Version 1)
Quarter: 2014Q4

REPORT INFORMATION
  Report Type: Spontaneous
  Country: US (occurrence: None)
  Receive Date: 20141010
  Receipt Date: 20141010
  Transmission Date: 20150529
  Serious: No
  Sender: FDA-Public Use
  Company Number: 163-POMAL-14071338

PATIENT
  Age: 65 Year
  Sex: Female
  Weight: 61.24 kg

DRUGS (7)
  1. POMALYST [Suspect]
     Active Substance: POMALIDOMIDE
     Indication: PLASMA CELL MYELOMA
     Dosage: 3 MG, 21 IN 21 D, PO
     Route: 048
     Dates: start: 20130719
  2. LACTULOSE. [Concomitant]
     Active Substance: LACTULOSE
  3. TYLENOL(PARACETAMOL) [Concomitant]
  4. SIMVASTATIN. [Concomitant]
     Active Substance: SIMVASTATIN
  5. IMODIUM(LOPERAMIDE HYDROCHLORIDE) [Concomitant]
  6. DEXAMETHASONE. [Concomitant]
     Active Substance: DEXAMETHASONE
  7. PEDIALYTE [Concomitant]

REACTIONS (1)
  - Gastroenteritis salmonella [None]
